FAERS Safety Report 10915849 (Version 1)
Quarter: 2015Q1

REPORT INFORMATION
  Report Type: Spontaneous
  Country: US (occurrence: None)
  Receive Date: 20150311
  Receipt Date: 20150311
  Transmission Date: 20150721
  Serious: Yes (Other)
  Sender: FDA-Public Use
  Company Number: None

PATIENT
  Age: 84 Year
  Sex: Female
  Weight: 71.67 kg

DRUGS (2)
  1. CIPROFLOXACIN HCL [Suspect]
     Active Substance: CIPROFLOXACIN HYDROCHLORIDE
     Indication: URINARY TRACT INFECTION
     Dosage: 500 MG, ONE TAB. EVERY 12 HOURS, 2 A DAY, MOUTH
     Route: 048
     Dates: start: 20150111, end: 20150115
  2. MULTIVITAMINS [Concomitant]
     Active Substance: VITAMINS

REACTIONS (4)
  - Pain in extremity [None]
  - Pain [None]
  - Feeling abnormal [None]
  - Gait disturbance [None]

NARRATIVE: CASE EVENT DATE: 20150115
